FAERS Safety Report 6021910-8 (Version None)
Quarter: 2008Q4

REPORT INFORMATION
  Report Type: 
  Country: None (occurrence: None)
  Receive Date: 20081223
  Receipt Date: 20081215
  Transmission Date: 20090506
  Serious: Yes (Hospitalization)
  Sender: FDA-Public Use
  Company Number: 233036K08USA

PATIENT
  Age: 66 Year
  Sex: Female

DRUGS (14)
  1. REBIF [Suspect]
     Indication: MULTIPLE SCLEROSIS
     Dosage: SUBCUTANEOUS
     Route: 058
     Dates: start: 20060601, end: 20070601
  2. ZANAFLEX [Concomitant]
  3. LEVOTHYROXINE [Concomitant]
  4. DITROPAN XL [Concomitant]
  5. ARICEPT [Concomitant]
  6. AMBIEN CR [Concomitant]
  7. PROVIGIL [Concomitant]
  8. SINGULAIR [Concomitant]
  9. SYMBICORT [Concomitant]
  10. ANTIVERT [Concomitant]
  11. LODINE [Concomitant]
  12. ARIMIDEX [Concomitant]
  13. IMITREX [Concomitant]
  14. LEXAPRO [Concomitant]

REACTIONS (3)
  - DEHYDRATION [None]
  - GASTROENTERITIS [None]
  - GASTROOESOPHAGEAL REFLUX DISEASE [None]
